FAERS Safety Report 20744898 (Version 1)
Quarter: 2022Q2

REPORT INFORMATION
  Report Type: Spontaneous
  Country: FR (occurrence: FR)
  Receive Date: 20220425
  Receipt Date: 20220425
  Transmission Date: 20220720
  Serious: Yes (Other)
  Sender: FDA-Public Use
  Company Number: None

PATIENT
  Age: 78 Year
  Sex: Male

DRUGS (2)
  1. ACETAMINOPHEN [Suspect]
     Active Substance: ACETAMINOPHEN
     Indication: Product used for unknown indication
     Dosage: 4 TABLETS OF 37.5MG OF TRAMADOL 325 MG OF PARACETAMOL
     Route: 048
  2. TRAMADOL [Suspect]
     Active Substance: TRAMADOL
     Indication: Product used for unknown indication
     Dosage: 4 TABLETS OF 37.5MG OF TRAMADOL 325 MG OF PARACETAMOL
     Route: 048

REACTIONS (1)
  - Drug use disorder [Not Recovered/Not Resolved]
